FAERS Safety Report 15420989 (Version 1)
Quarter: 2018Q3

REPORT INFORMATION
  Report Type: Spontaneous
  Country: US (occurrence: US)
  Receive Date: 20180924
  Receipt Date: 20180924
  Transmission Date: 20181010
  Serious: No
  Sender: FDA-Public Use
  Company Number: US-ALLERGAN-1772297US

PATIENT
  Age: 67 Year
  Sex: Male
  Weight: 74.83 kg

DRUGS (1)
  1. LINZESS [Suspect]
     Active Substance: LINACLOTIDE
     Indication: CONSTIPATION
     Dosage: 1 DF, QD
     Route: 048
     Dates: start: 201712

REACTIONS (4)
  - Discomfort [Recovered/Resolved]
  - Gastrointestinal motility disorder [Recovered/Resolved]
  - Diarrhoea [Recovered/Resolved]
  - Hyperchlorhydria [Recovered/Resolved]
